FAERS Safety Report 9026712 (Version 2)
Quarter: 2013Q2

REPORT INFORMATION
  Report Type: Spontaneous
  Country: US (occurrence: None)
  Receive Date: 20120525
  Receipt Date: 20120827
  Transmission Date: 20140414
  Serious: Yes (Hospitalization)
  Sender: FDA-Public Use
  Company Number: 349071

PATIENT
  Age: 61 Year
  Sex: Female
  Weight: 109.3 kg

DRUGS (4)
  1. VICTOZA (LIRAGLUTIDE) SOLUTION FOR INJECTION, 6MG/ML [Suspect]
     Indication: TYPE 2 DIABETES MELLITUS
     Route: 058
     Dates: start: 20111205, end: 20120405
  2. JANUVIA (SITAGLIPTIN PHOSPHATE) [Suspect]
     Indication: TYPE 2 DIABETES MELLITUS
     Route: 048
     Dates: end: 20120405
  3. GLIMEPIRIDE (GLIMEPIRIDE) [Concomitant]
  4. INSULIN (INSULIN) [Concomitant]

REACTIONS (1)
  - Pancreatitis [None]
